FAERS Safety Report 26173895 (Version 1)
Quarter: 2025Q4

REPORT INFORMATION
  Report Type: Spontaneous
  Country: US (occurrence: US)
  Receive Date: 20251218
  Receipt Date: 20251218
  Transmission Date: 20260117
  Serious: Yes (Other)
  Sender: RANBAXY
  Company Number: US-SUN PHARMACEUTICAL INDUSTRIES INC-2025R1-526867

PATIENT
  Age: 74 Year
  Sex: Female

DRUGS (2)
  1. HYDROXYCHLOROQUINE [Suspect]
     Active Substance: HYDROXYCHLOROQUINE
     Indication: Product used for unknown indication
     Dosage: UNK
     Route: 065
  2. METHOTREXATE [Suspect]
     Active Substance: METHOTREXATE
     Indication: Product used for unknown indication
     Dosage: UNK
     Route: 065

REACTIONS (8)
  - Diarrhoea haemorrhagic [Unknown]
  - Toxicity to various agents [Unknown]
  - Dysphagia [Unknown]
  - Gingival bleeding [Unknown]
  - Nausea [Unknown]
  - Odynophagia [Unknown]
  - Skin abrasion [Recovering/Resolving]
  - Vomiting [Unknown]
